FAERS Safety Report 4677719-0 (Version None)
Quarter: 2005Q2

REPORT INFORMATION
  Report Type: 
  Country: None (occurrence: None)
  Receive Date: 20050527
  Receipt Date: 20050527
  Transmission Date: 20051028
  Serious: No
  Sender: FDA-Public Use
  Company Number: None

PATIENT
  Sex: Male
  Weight: 119.1 kg

DRUGS (4)
  1. ADRIAMYCIN PFS [Suspect]
     Indication: HODGKIN'S DISEASE
     Dosage: 19 MG/M^2 IV ON DAYS 1 + 15
     Dates: start: 20041129
  2. BLEOMYCIN [Suspect]
     Dosage: 10 MG/M^2 IV ON DAYS 1 + 15
     Route: 042
  3. VINBLASTINE [Suspect]
     Dosage: 4.5 MG/M^2 IV ON DAYS 1 + 15
     Route: 042
  4. DACARBAZINE [Suspect]
     Dosage: 375 MG/M^2 IV ON DAYS 1 + 15
     Route: 042

REACTIONS (4)
  - OEDEMA PERIPHERAL [None]
  - PULMONARY EMBOLISM [None]
  - ROAD TRAFFIC ACCIDENT [None]
  - THROMBOSIS [None]
